FAERS Safety Report 8086012-8 (Version None)
Quarter: 2012Q1

REPORT INFORMATION
  Report Type: 
  Country: None (occurrence: None)
  Receive Date: 20120128
  Receipt Date: 20110609
  Transmission Date: 20120608
  Serious: No
  Sender: FDA-Public Use
  Company Number: US-ABBOTT-11P-163-0731503-00

PATIENT
  Age: 61 Year
  Sex: Male

DRUGS (4)
  1. OTC IRON [Concomitant]
     Indication: BLOOD IRON DECREASED
  2. HUMIRA [Suspect]
     Indication: ANKYLOSING SPONDYLITIS
     Dates: start: 20060101, end: 20110528
  3. LISINOPRIL [Concomitant]
     Indication: HYPERTENSION
  4. CYMBALTA [Concomitant]
     Indication: DEPRESSION

REACTIONS (1)
  - PYREXIA [None]
